FAERS Safety Report 5419128-2 (Version None)
Quarter: 2007Q3

REPORT INFORMATION
  Report Type: 
  Country: None (occurrence: None)
  Receive Date: 20070820
  Receipt Date: 20070813
  Transmission Date: 20080115
  Serious: Yes (Other)
  Sender: FDA-Public Use
  Company Number: PHEH2007US09646

PATIENT
  Sex: Female

DRUGS (2)
  1. TEKTURNA [Suspect]
     Route: 048
  2. HYDROCHLOROTHIAZIDE [Suspect]
     Indication: OEDEMA
     Route: 048

REACTIONS (1)
  - BLOOD SODIUM DECREASED [None]
